FAERS Safety Report 4384247-9 (Version None)
Quarter: 2004Q2

REPORT INFORMATION
  Report Type: 
  Country: None (occurrence: None)
  Receive Date: 20040618
  Receipt Date: 20040609
  Transmission Date: 20050107
  Serious: Yes (Death, Hospitalization)
  Sender: FDA-Public Use
  Company Number: 2004215083US

PATIENT
  Age: 68 Year
  Sex: Male
  Weight: 79.4 kg

DRUGS (2)
  1. CAMPTOSAR [Suspect]
     Indication: OESOPHAGEAL CARCINOMA
     Dosage: 95 MG, WEEKLY, IV
     Route: 042
     Dates: start: 20040513, end: 20040520
  2. COMPARATOR-DOCETAXEL (DOCETAXEL, DOCETAXEL) INJECTION [Suspect]
     Indication: OESOPHAGEAL CARCINOMA
     Dosage: 66 MG, WEEKLY, IV
     Route: 042
     Dates: start: 20040513, end: 20040520

REACTIONS (4)
  - CARDIO-RESPIRATORY ARREST [None]
  - DEHYDRATION [None]
  - DIARRHOEA [None]
  - VOMITING [None]
